FAERS Safety Report 12582490 (Version 2)
Quarter: 2016Q3

REPORT INFORMATION
  Report Type: Spontaneous
  Country: JP (occurrence: JP)
  Receive Date: 20160722
  Receipt Date: 20160728
  Transmission Date: 20161109
  Serious: Yes (Death, Hospitalization, Other)
  Sender: FDA-Public Use
  Company Number: JP-ASTELLAS-2016JP009296AA

PATIENT
  Age: 76 Year
  Sex: Female
  Weight: 29 kg

DRUGS (7)
  1. PIRESPA [Suspect]
     Active Substance: PIRFENIDONE
     Indication: IDIOPATHIC PULMONARY FIBROSIS
     Route: 048
     Dates: start: 20140929, end: 20141030
  2. ASTOMIN                            /00426502/ [Concomitant]
     Active Substance: DIMEMORFAN PHOSPHATE
     Indication: PULMONARY FIBROSIS
     Route: 048
     Dates: end: 20160210
  3. URSO [Concomitant]
     Active Substance: URSODIOL
     Indication: HEPATITIS C
     Dosage: 200 MG IN THE MORNING, 100 MG IN THE EVENING, TWICE DAILY
     Route: 048
     Dates: end: 20160210
  4. SELBEX [Concomitant]
     Active Substance: TEPRENONE
     Indication: GASTRITIS
     Route: 048
     Dates: end: 20160210
  5. PREDONINE [Suspect]
     Active Substance: PREDNISOLONE\PREDNISOLONE ACETATE\PREDNISOLONE SODIUM SUCCINATE
     Indication: IDIOPATHIC PULMONARY FIBROSIS
     Route: 048
     Dates: start: 20141114, end: 20160210
  6. PROGRAF [Suspect]
     Active Substance: TACROLIMUS\TACROLIMUS ANHYDROUS
     Indication: LIVER TRANSPLANT
     Dosage: 0.8 MG, TWICE DAILY
     Route: 048
     Dates: end: 20160210
  7. PIRESPA [Suspect]
     Active Substance: PIRFENIDONE
     Route: 048
     Dates: start: 20141031, end: 20160210

REACTIONS (5)
  - Decreased appetite [Recovered/Resolved]
  - Alanine aminotransferase increased [Not Recovered/Not Resolved]
  - Idiopathic pulmonary fibrosis [Fatal]
  - Weight decreased [Not Recovered/Not Resolved]
  - Aspartate aminotransferase increased [Not Recovered/Not Resolved]

NARRATIVE: CASE EVENT DATE: 2011
